FAERS Safety Report 4601945-X (Version None)
Quarter: 2005Q1

REPORT INFORMATION
  Report Type: 
  Country: None (occurrence: None)
  Receive Date: 20050215
  Receipt Date: 20041209
  Transmission Date: 20050727
  Serious: Yes (Hospitalization)
  Sender: FDA-Public Use
  Company Number: 388811

PATIENT
  Age: 44 Year
  Sex: Male

DRUGS (5)
  1. PEGASYS [Suspect]
     Indication: HEPATITIS C
     Dosage: 90 MCG 1 PER WEEK SUBCUTANEOUS
     Route: 058
     Dates: start: 20040719
  2. PEG-INTRON [Suspect]
     Indication: HEPATITIS C
     Dosage: 120 MCG 1 PER WEEK SUBCUTANEOUS
     Route: 058
     Dates: start: 20040527, end: 20040719
  3. GABAPENTIN [Concomitant]
  4. TRAZODONE (TRAZODONE HYDROCHLORIDE) [Concomitant]
  5. EPOGEN [Concomitant]

REACTIONS (8)
  - ANAEMIA [None]
  - ASTHENIA [None]
  - DEPRESSION [None]
  - DIARRHOEA [None]
  - HEADACHE [None]
  - NAUSEA [None]
  - ROAD TRAFFIC ACCIDENT [None]
  - VOMITING [None]
